FAERS Safety Report 12340725 (Version 4)
Quarter: 2017Q1

REPORT INFORMATION
  Report Type: Report from Study
  Country: JP (occurrence: JP)
  Receive Date: 20160506
  Receipt Date: 20170116
  Transmission Date: 20170428
  Serious: Yes (Hospitalization)
  Sender: FDA-Public Use
  Company Number: JP-ORION CORPORATION ORION PHARMA-ENTC2016-0226

PATIENT
  Age: 85 Year
  Sex: Female
  Weight: 35 kg

DRUGS (18)
  1. SEROQUEL [Concomitant]
     Active Substance: QUETIAPINE FUMARATE
     Route: 065
  2. MAGMITT [Concomitant]
     Active Substance: MAGNESIUM OXIDE
     Route: 065
  3. LEFTOSE [Concomitant]
     Active Substance: LYSOZYME HYDROCHLORIDE
     Indication: BRONCHITIS
     Route: 065
     Dates: start: 20160219, end: 20160224
  4. LOBU [Concomitant]
     Active Substance: LOBUCAVIR
     Indication: BRONCHITIS
     Route: 065
     Dates: start: 20160219, end: 201602
  5. STALEVO [Suspect]
     Active Substance: CARBIDOPA\ENTACAPONE\LEVODOPA
     Indication: PARKINSON^S DISEASE
     Dosage: STRENGTH: 100/10/100 MG
     Route: 048
     Dates: start: 20160219, end: 20160322
  6. BENET [Concomitant]
     Active Substance: RISEDRONATE SODIUM
     Route: 065
     Dates: end: 20160322
  7. NAUZELIN [Concomitant]
     Active Substance: DOMPERIDONE
     Route: 065
  8. MUCODYNE [Concomitant]
     Active Substance: CARBOCYSTEINE
     Route: 065
     Dates: start: 20160317, end: 20160322
  9. MUCODYNE [Concomitant]
     Active Substance: CARBOCYSTEINE
     Indication: BRONCHITIS
     Route: 065
     Dates: start: 20160219, end: 20160322
  10. FP-OD [Concomitant]
     Active Substance: SELEGILINE HYDROCHLORIDE
     Route: 065
  11. RESPLEN [Concomitant]
     Active Substance: EPRAZINONE
     Route: 065
     Dates: start: 20160317, end: 20160323
  12. GENINAX [Concomitant]
     Active Substance: GARENOXACIN MESYLATE
     Indication: BRONCHITIS
     Route: 065
     Dates: start: 20160219, end: 20160224
  13. GENINAX [Concomitant]
     Active Substance: GARENOXACIN MESYLATE
     Route: 065
     Dates: start: 20160317, end: 20160322
  14. DOPASTON [Concomitant]
     Active Substance: LEVODOPA
     Route: 065
     Dates: start: 20160323, end: 20160328
  15. NEUPRO [Concomitant]
     Active Substance: ROTIGOTINE
     Route: 065
  16. DIOVAN [Concomitant]
     Active Substance: VALSARTAN
     Route: 048
  17. OVULANZE [Concomitant]
     Active Substance: OMEPRAZOLE
     Route: 065
  18. RESPLEN [Concomitant]
     Active Substance: EPRAZINONE
     Indication: BRONCHITIS
     Route: 065
     Dates: start: 20160219, end: 20160323

REACTIONS (4)
  - Pneumonia [Recovered/Resolved]
  - Pneumonia aspiration [Recovering/Resolving]
  - Hyponatraemia [Unknown]
  - Depressed level of consciousness [Recovered/Resolved]

NARRATIVE: CASE EVENT DATE: 20160219
